FAERS Safety Report 14952607 (Version 3)
Quarter: 2021Q4

REPORT INFORMATION
  Report Type: Spontaneous
  Country: US (occurrence: US)
  Receive Date: 20180530
  Receipt Date: 20211111
  Transmission Date: 20220303
  Serious: No
  Sender: FDA-Public Use
  Company Number: US-PFIZER INC-2018221165

PATIENT
  Age: 45 Year
  Sex: Female
  Weight: 72.562 kg

DRUGS (1)
  1. LYRICA [Suspect]
     Active Substance: PREGABALIN
     Indication: Headache
     Dosage: 50 MG, 2X/DAY

REACTIONS (2)
  - Pain [Unknown]
  - Off label use [Unknown]
